FAERS Safety Report 6392504-X (Version None)
Quarter: 2009Q4

REPORT INFORMATION
  Report Type: 
  Country: None (occurrence: None)
  Receive Date: 20091007
  Receipt Date: 20090930
  Transmission Date: 20100525
  Serious: Yes (Death)
  Sender: FDA-Public Use
  Company Number: PHHO2009US12167

PATIENT
  Sex: Male
  Weight: 100.4 kg

DRUGS (8)
  1. BLINDED NO TREATMENT RECEIVED NOMED [Suspect]
     Indication: GLUCOSE TOLERANCE IMPAIRED
     Dosage: LEVEL 1
     Route: 048
     Dates: start: 20020619
  2. BLINDED PLACEBO PLACEBO [Suspect]
     Indication: GLUCOSE TOLERANCE IMPAIRED
     Dosage: LEVEL 1
     Route: 048
     Dates: start: 20020619
  3. STARLIX [Suspect]
     Indication: GLUCOSE TOLERANCE IMPAIRED
     Dosage: LEVEL 1
     Route: 048
     Dates: start: 20020619
  4. BLINDED NO TREATMENT RECEIVED NOMED [Suspect]
     Dosage: LEVEL 2
     Route: 048
  5. BLINDED PLACEBO PLACEBO [Suspect]
     Dosage: LEVEL 2
     Route: 048
  6. STARLIX [Suspect]
     Dosage: LEVEL 2
     Route: 048
  7. VALSARTAN [Suspect]
     Indication: CARDIOVASCULAR DISORDER
     Dosage: LEVEL 1
     Route: 048
     Dates: start: 20020619
  8. VALSARTAN [Suspect]
     Dosage: LEVEL 2
     Route: 048

REACTIONS (1)
  - DEATH [None]
